FAERS Safety Report 5578512-7 (Version None)
Quarter: 2007Q4

REPORT INFORMATION
  Report Type: 
  Country: None (occurrence: None)
  Receive Date: 20071227
  Receipt Date: 20060511
  Transmission Date: 20080405
  Serious: Yes (Death)
  Sender: FDA-Public Use
  Company Number: 2006VX001656

PATIENT
  Age: 12 Year
  Sex: Female

DRUGS (5)
  1. CESAMET [Suspect]
     Dosage: PO
     Route: 048
  2. CYCLOPHOSPHAMIDE [Concomitant]
  3. VINCRISTINE [Concomitant]
  4. DACTINOMYCIN [Concomitant]
  5. DAUNORUBICIN HCL [Concomitant]

REACTIONS (1)
  - DEATH [None]
